FAERS Safety Report 17122604 (Version 2)
Quarter: 2020Q1

REPORT INFORMATION
  Report Type: Spontaneous
  Country: US (occurrence: US)
  Receive Date: 20191206
  Receipt Date: 20200305
  Transmission Date: 20200409
  Serious: No
  Sender: FDA-Public Use
  Company Number: US-ROCHE-2300036

PATIENT
  Sex: Female

DRUGS (3)
  1. PERJETA [Suspect]
     Active Substance: PERTUZUMAB
     Indication: HER-2 POSITIVE BREAST CANCER
     Dosage: 3 DOSES SO FAR; NEXT CYCLE SCHEDULED ON 12/APR/2019
     Route: 065
     Dates: start: 20190108
  2. TAXOTERE [Suspect]
     Active Substance: DOCETAXEL
     Indication: HER-2 POSITIVE BREAST CANCER
     Dosage: RECEIVED ONE DOSE WITH TRASTUZUMAB AND PERTUZUMAB
     Route: 065
     Dates: start: 20190108, end: 20190108
  3. HERCEPTIN [Suspect]
     Active Substance: TRASTUZUMAB
     Indication: HER-2 POSITIVE BREAST CANCER
     Dosage: 3 DOSES SO FAR; NEXT CYCLE SCHEDULED ON 12/APR/2019
     Route: 065
     Dates: start: 20190108

REACTIONS (4)
  - Off label use [Unknown]
  - Headache [Unknown]
  - Alopecia [Recovering/Resolving]
  - Intentional product use issue [Unknown]
